FAERS Safety Report 7557784-3 (Version None)
Quarter: 2011Q2

REPORT INFORMATION
  Report Type: 
  Country: None (occurrence: None)
  Receive Date: 20110620
  Receipt Date: 20110609
  Transmission Date: 20111010
  Serious: Yes (Hospitalization, Other)
  Sender: FDA-Public Use
  Company Number: JP-PFIZER INC-2011049545

PATIENT
  Age: 70 Year
  Sex: Male

DRUGS (10)
  1. PRAMIPEXOLE HYDROCHLORIDE MONOHYDRATE [Concomitant]
     Indication: PARKINSON'S DISEASE
     Dosage: UNK
     Route: 048
     Dates: start: 20060101, end: 20090910
  2. AMLODIPINE [Suspect]
     Indication: HYPERTENSION
     Dosage: 5 MG, UNK
     Route: 048
     Dates: end: 20080513
  3. TICLOPIDINE HCL [Concomitant]
     Indication: POSTOPERATIVE CARE
     Dosage: 200 MG, UNK
     Route: 048
  4. PURSENNID [Concomitant]
     Indication: CONSTIPATION
     Dosage: 24 MG, UNK
     Route: 048
  5. ASPIRIN [Concomitant]
     Indication: HYPERTENSION
     Dosage: 100 MG, UNK
     Route: 048
  6. LANDEL [Concomitant]
     Indication: HYPERTENSION
     Dosage: 40 MG, UNK
     Route: 048
  7. ATELEC [Concomitant]
     Indication: HYPERTENSION
     Dosage: 10 MG, UNK
     Route: 048
  8. AMOBAN [Concomitant]
     Indication: INSOMNIA
     Dosage: 7.5 MG, UNK
     Route: 048
  9. SYMMETREL [Concomitant]
     Indication: PARKINSON'S DISEASE
     Dosage: 200 MG, UNK
     Route: 048
     Dates: start: 20060101
  10. CANDESARTAN CILEXETIL [Concomitant]
     Indication: HYPERTENSION
     Dosage: 4 MG, UNK
     Route: 048

REACTIONS (1)
  - PARKINSONISM [None]
